FAERS Safety Report 21727401 (Version 1)
Quarter: 2022Q4

REPORT INFORMATION
  Report Type: Spontaneous
  Country: US (occurrence: None)
  Receive Date: 20221213
  Receipt Date: 20221213
  Transmission Date: 20230113
  Serious: Yes (Hospitalization)
  Sender: FDA-Public Use
  Company Number: None

PATIENT
  Age: 74 Year
  Sex: Female

DRUGS (4)
  1. TACROLIMUS [Suspect]
     Active Substance: TACROLIMUS
  2. EVEROLIMUS [Concomitant]
     Active Substance: EVEROLIMUS
  3. EVEROL9MUS [Concomitant]
  4. ZORTRESS [Concomitant]
     Active Substance: EVEROLIMUS

REACTIONS (2)
  - Heart rate increased [None]
  - Hypertension [None]

NARRATIVE: CASE EVENT DATE: 20221204
